FAERS Safety Report 5309378-8 (Version None)
Quarter: 2007Q2

REPORT INFORMATION
  Report Type: 
  Country: None (occurrence: None)
  Receive Date: 20070425
  Receipt Date: 20070425
  Transmission Date: 20071010
  Serious: Yes (Other)
  Sender: FDA-Public Use
  Company Number: None

PATIENT
  Sex: Male

DRUGS (1)
  1. ELIDEL [Suspect]
     Indication: ECZEMA
     Dosage: APPLIED SPARINGLY BID FOR ONE DAY TOPICAL
     Route: 061
     Dates: start: 20070306

REACTIONS (1)
  - PETECHIAE [None]
